APPROVED DRUG PRODUCT: CEFAZOLIN SODIUM
Active Ingredient: CEFAZOLIN SODIUM
Strength: EQ 20GM BASE/VIAL
Dosage Form/Route: INJECTABLE;INJECTION
Application: A062688 | Product #005
Applicant: ABRAXIS PHARMACEUTICAL PRODUCTS
Approved: Aug 3, 1987 | RLD: No | RS: No | Type: DISCN